FAERS Safety Report 14335440 (Version 1)
Quarter: 2017Q4

REPORT INFORMATION
  Report Type: Report from Study
  Country: FR (occurrence: FR)
  Receive Date: 20171229
  Receipt Date: 20171229
  Transmission Date: 20180321
  Serious: Yes (Hospitalization, Other)
  Sender: FDA-Public Use
  Company Number: FR-ROCHE-2043723

PATIENT
  Age: 79 Year
  Sex: Male
  Weight: 71 kg

DRUGS (9)
  1. RITUXIMAB. [Suspect]
     Active Substance: RITUXIMAB
     Dosage: RANDOMIZATION IN RITUXIMAB MAINTAINANCE ARM A
     Route: 041
     Dates: start: 20120625
  2. ZELITREX [Concomitant]
     Active Substance: VALACYCLOVIR HYDROCHLORIDE
     Indication: PROPHYLAXIS
     Route: 048
     Dates: start: 20120116
  3. BACTRIM [Concomitant]
     Active Substance: SULFAMETHOXAZOLE\TRIMETHOPRIM
     Indication: PROPHYLAXIS
     Route: 048
     Dates: start: 20120116
  4. RITUXIMAB. [Suspect]
     Active Substance: RITUXIMAB
     Dosage: CYCLE M16
     Route: 041
     Dates: start: 20130924
  5. RITUXIMAB. [Suspect]
     Active Substance: RITUXIMAB
     Dosage: CYCLE M22
     Route: 041
     Dates: start: 20140310
  6. DIAMOX SEQUELS [Concomitant]
     Active Substance: ACETAZOLAMIDE
     Indication: GLAUCOMA
     Route: 048
     Dates: start: 20120322
  7. RITUXIMAB. [Suspect]
     Active Substance: RITUXIMAB
     Indication: CHRONIC LYMPHOCYTIC LEUKAEMIA
     Route: 041
     Dates: start: 20120703
  8. CIFLOX (FRANCE) [Concomitant]
     Active Substance: CIPROFLOXACIN
     Route: 065
     Dates: start: 20131009, end: 20131016
  9. INEXIUM [Concomitant]
     Active Substance: ESOMEPRAZOLE
     Indication: PROPHYLAXIS
     Route: 048
     Dates: start: 20140310

REACTIONS (3)
  - Joint swelling [Recovered/Resolved]
  - Basal cell carcinoma [Not Recovered/Not Resolved]
  - Squamous cell carcinoma [Not Recovered/Not Resolved]

NARRATIVE: CASE EVENT DATE: 20131002
